FAERS Safety Report 9885227 (Version 2)
Quarter: 2014Q1

REPORT INFORMATION
  Report Type: Spontaneous
  Country: US (occurrence: US)
  Receive Date: 20140210
  Receipt Date: 20140311
  Transmission Date: 20141002
  Serious: No
  Sender: FDA-Public Use
  Company Number: US-PFIZER INC-2014034594

PATIENT
  Age: 83 Year
  Sex: Female
  Weight: 71.2 kg

DRUGS (3)
  1. XALATAN [Suspect]
     Indication: GLAUCOMA
     Dosage: 1 GTT, 1X/DAY, AT NIGHT (QHS)
     Route: 047
  2. XALATAN [Suspect]
     Dosage: QHS
     Route: 061
     Dates: start: 19960813
  3. ADVAIR DISKUS [Concomitant]
     Indication: ASTHMA
     Dosage: UNK, 2X/DAY

REACTIONS (4)
  - Fall [Unknown]
  - Joint swelling [Recovered/Resolved]
  - Contusion [Recovered/Resolved]
  - Contusion [Recovered/Resolved]
